FAERS Safety Report 5103155-9 (Version None)
Quarter: 2006Q3

REPORT INFORMATION
  Report Type: 
  Country: None (occurrence: None)
  Receive Date: 20060913
  Receipt Date: 20060809
  Transmission Date: 20061208
  Serious: Yes (Hospitalization)
  Sender: FDA-Public Use
  Company Number: JP-SP-2006-02115

PATIENT
  Age: 72 Year
  Sex: Male

DRUGS (1)
  1. IMMUCYST [Suspect]
     Indication: BLADDER CANCER
     Dosage: 6 TIMES, TOTAL DOSE: 486 MG
     Route: 043
     Dates: start: 20060628, end: 20060802

REACTIONS (5)
  - ANOREXIA [None]
  - ARTHRALGIA [None]
  - FATIGUE [None]
  - OCULAR HYPERAEMIA [None]
  - REITER'S SYNDROME [None]
